FAERS Safety Report 7913761-1 (Version None)
Quarter: 2011Q4

REPORT INFORMATION
  Report Type: 
  Country: None (occurrence: None)
  Receive Date: 20111115
  Receipt Date: 20111103
  Transmission Date: 20120403
  Serious: Yes (Hospitalization, Other)
  Sender: FDA-Public Use
  Company Number: US-BRISTOL-MYERS SQUIBB COMPANY-16227761

PATIENT
  Age: 65 Year
  Sex: Male
  Weight: 113 kg

DRUGS (9)
  1. FUROSEMIDE [Concomitant]
  2. MEDROL [Concomitant]
     Dates: start: 20101014
  3. FENTANYL [Concomitant]
  4. CETUXIMAB [Suspect]
     Indication: NON-SMALL CELL LUNG CANCER
     Dosage: INTER ON 19OCT10 RESTAT ON 26OCT10 WITH 1682MG INTER ON02NOV10
     Route: 042
     Dates: start: 20100928
  5. NOVOLOG [Concomitant]
  6. CARBOPLATIN [Suspect]
     Indication: NON-SMALL CELL LUNG CANCER
     Dosage: INTER ON 26OCT19OCT10 26OCT10-UNK,1462MG
     Route: 042
     Dates: start: 20100928
  7. PACLITAXEL [Suspect]
     Indication: NON-SMALL CELL LUNG CANCER
     Dosage: INTER ON 19OCT10 26OCT10-UNK,900MG
     Route: 042
     Dates: start: 20100928
  8. ALLOPURINOL [Concomitant]
  9. GLYBURIDE [Concomitant]

REACTIONS (10)
  - PNEUMONITIS [None]
  - BLOOD CREATININE INCREASED [None]
  - HYPONATRAEMIA [None]
  - HYPERGLYCAEMIA [None]
  - DEHYDRATION [None]
  - DIARRHOEA [None]
  - NAUSEA [None]
  - NEUTROPHIL COUNT DECREASED [None]
  - HYPOKALAEMIA [None]
  - VOMITING [None]
